FAERS Safety Report 17591350 (Version 1)
Quarter: 2020Q1

REPORT INFORMATION
  Report Type: Spontaneous
  Country: ES (occurrence: ES)
  Receive Date: 20200327
  Receipt Date: 20200327
  Transmission Date: 20200409
  Serious: Yes (Other)
  Sender: FDA-Public Use
  Company Number: ES-PFIZER INC-2020129048

PATIENT
  Age: 52 Year
  Sex: Female
  Weight: 52 kg

DRUGS (3)
  1. PEMETREXED FRESENIUS KABI [PEMETREXED] [Suspect]
     Active Substance: PEMETREXED
     Indication: NON-SMALL CELL LUNG CANCER
     Dosage: 500 MG/M2, CYCLIC
     Route: 042
     Dates: start: 20190611, end: 20190709
  2. CARBOPLATIN. [Suspect]
     Active Substance: CARBOPLATIN
     Indication: NON-SMALL CELL LUNG CANCER
     Dosage: UNK UNK, CYCLIC
     Route: 042
     Dates: start: 20190611, end: 20190709
  3. INNOHEP [Suspect]
     Active Substance: TINZAPARIN SODIUM
     Indication: ENDOCARDITIS NONINFECTIVE
     Dosage: 10 KIU, 1X/DAY
     Route: 058
     Dates: start: 20190619, end: 20190702

REACTIONS (1)
  - Hepatitis cholestatic [Recovered/Resolved]

NARRATIVE: CASE EVENT DATE: 20190701
